FAERS Safety Report 23131507 (Version 2)
Quarter: 2023Q4

REPORT INFORMATION
  Report Type: Spontaneous
  Country: DE (occurrence: DE)
  Receive Date: 20231031
  Receipt Date: 20231113
  Transmission Date: 20240110
  Serious: Yes (Death, Other)
  Sender: FDA-Public Use
  Company Number: DE-TEVA-2023-DE-2940770

PATIENT
  Age: 62 Year
  Sex: Male

DRUGS (10)
  1. DEXAMETHASONE [Suspect]
     Active Substance: DEXAMETHASONE
     Indication: Cytokine release syndrome
     Route: 065
  2. BREXUCABTAGENE AUTOLEUCEL [Suspect]
     Active Substance: BREXUCABTAGENE AUTOLEUCEL
     Indication: Mantle cell lymphoma
     Route: 050
  3. TOCILIZUMAB [Suspect]
     Active Substance: TOCILIZUMAB
     Indication: Cytokine release syndrome
     Route: 065
  4. IBRUTINIB [Concomitant]
     Active Substance: IBRUTINIB
     Indication: Mantle cell lymphoma
     Route: 065
  5. FLUDARABINE [Concomitant]
     Active Substance: FLUDARABINE PHOSPHATE
     Indication: Mantle cell lymphoma
     Dosage: 90 MG/M2
     Route: 065
  6. FLUDARABINE [Concomitant]
     Active Substance: FLUDARABINE PHOSPHATE
     Indication: Lymphodepletion
  7. CYCLOPHOSPHAMIDE [Concomitant]
     Active Substance: CYCLOPHOSPHAMIDE
     Indication: Mantle cell lymphoma
     Dosage: 1500 MG/M2
     Route: 065
  8. CYCLOPHOSPHAMIDE [Concomitant]
     Active Substance: CYCLOPHOSPHAMIDE
     Indication: Lymphodepletion
  9. VINCRISTINE [Concomitant]
     Active Substance: VINCRISTINE
     Indication: Mantle cell lymphoma
     Route: 065
  10. PREDNISOLONE [Concomitant]
     Active Substance: PREDNISOLONE
     Indication: Mantle cell lymphoma
     Route: 065

REACTIONS (3)
  - Multiple organ dysfunction syndrome [Fatal]
  - Cytokine release syndrome [Not Recovered/Not Resolved]
  - Drug ineffective [Unknown]
